FAERS Safety Report 7021547-8 (Version None)
Quarter: 2010Q3

REPORT INFORMATION
  Report Type: 
  Country: None (occurrence: None)
  Receive Date: 20100928
  Receipt Date: 20100915
  Transmission Date: 20110219
  Serious: Yes (Other)
  Sender: FDA-Public Use
  Company Number: 2010AT000023

PATIENT
  Age: 14 Year
  Sex: Female
  Weight: 40.8237 kg

DRUGS (1)
  1. SEMPREX-D [Suspect]
     Indication: RHINITIS
     Dosage: 1 CAPSULES;BID; PO
     Route: 048
     Dates: start: 20100520, end: 20100522

REACTIONS (1)
  - SYNCOPE [None]
